FAERS Safety Report 15982232 (Version 2)
Quarter: 2019Q1

REPORT INFORMATION
  Report Type: Report from Study
  Country: CA (occurrence: CA)
  Receive Date: 20190219
  Receipt Date: 20190306
  Transmission Date: 20190418
  Serious: Yes (Hospitalization, Disabling, Other)
  Sender: FDA-Public Use
  Company Number: CA-PFIZER INC-2019068924

PATIENT
  Age: 56 Year
  Sex: Female
  Weight: 76.6 kg

DRUGS (5)
  1. METFORMIN [Concomitant]
     Active Substance: METFORMIN HYDROCHLORIDE
     Dosage: 500 MG, 2X/DAY
     Route: 048
  2. ATORVASTATIN [Concomitant]
     Active Substance: ATORVASTATIN
     Dosage: 10 MG, 1X/DAY
     Route: 048
  3. CIPROFLOXACIN. [Concomitant]
     Active Substance: CIPROFLOXACIN
     Indication: URINARY TRACT INFECTION
     Dosage: 250 MG, 2X/DAY
     Route: 048
     Dates: start: 201812
  4. LORLATINIB [Suspect]
     Active Substance: LORLATINIB
     Indication: NON-SMALL CELL LUNG CANCER
     Dosage: 25 MG, 4X/DAY (100 MG DAILY)
     Route: 048
     Dates: start: 201808, end: 20190115
  5. FUROSEMIDE. [Concomitant]
     Active Substance: FUROSEMIDE
     Dosage: 20 MG, 1X/DAY
     Route: 048

REACTIONS (11)
  - Dyspraxia [Recovering/Resolving]
  - Hypermagnesaemia [Unknown]
  - Headache [Recovering/Resolving]
  - Paraesthesia [Recovering/Resolving]
  - Leukoencephalopathy [Unknown]
  - Muscular weakness [Recovering/Resolving]
  - Hypoacusis [Recovering/Resolving]
  - Hypercalcaemia [Unknown]
  - Acute kidney injury [Unknown]
  - Cognitive disorder [Recovering/Resolving]
  - Hallucination, auditory [Recovering/Resolving]

NARRATIVE: CASE EVENT DATE: 2018
